FAERS Safety Report 5736420-2 (Version None)
Quarter: 2008Q2

REPORT INFORMATION
  Report Type: 
  Country: None (occurrence: None)
  Receive Date: 20080513
  Receipt Date: 20080501
  Transmission Date: 20081010
  Serious: Yes (Other)
  Sender: FDA-Public Use
  Company Number: B0361210A

PATIENT
  Sex: Male

DRUGS (3)
  1. PAROXETINE HCL [Suspect]
     Indication: DEPRESSION
     Route: 065
     Dates: start: 20011205
  2. PROTHIADEN [Concomitant]
     Route: 065
     Dates: start: 19990726, end: 20020206
  3. DIAZEPAM [Concomitant]
     Dates: start: 20020718

REACTIONS (26)
  - AGITATION [None]
  - AMNESIA [None]
  - ANGER [None]
  - ANORGASMIA [None]
  - BALANCE DISORDER [None]
  - DEPRESSIVE SYMPTOM [None]
  - DISTURBANCE IN ATTENTION [None]
  - ELECTRIC SHOCK [None]
  - FATIGUE [None]
  - FEELING ABNORMAL [None]
  - FEELING JITTERY [None]
  - GAIT DISTURBANCE [None]
  - HALLUCINATION, VISUAL [None]
  - HEAD BANGING [None]
  - HYPERHIDROSIS [None]
  - INFLUENZA LIKE ILLNESS [None]
  - INSOMNIA [None]
  - IRRITABILITY [None]
  - MOOD SWINGS [None]
  - MUSCULOSKELETAL PAIN [None]
  - PAIN [None]
  - SLEEP DISORDER [None]
  - TENSION [None]
  - TREMOR [None]
  - VIOLENCE-RELATED SYMPTOM [None]
  - WITHDRAWAL SYNDROME [None]
